FAERS Safety Report 12985902 (Version 1)
Quarter: 2016Q4

REPORT INFORMATION
  Report Type: Spontaneous
  Country: MX (occurrence: MX)
  Receive Date: 20161130
  Receipt Date: 20161130
  Transmission Date: 20170207
  Serious: Yes (Hospitalization, Other)
  Sender: FDA-Public Use
  Company Number: MX-AMGEN-MEXSP2016144321

PATIENT
  Age: 10 Year
  Sex: Female
  Weight: 23 kg

DRUGS (7)
  1. BLINCYTO [Suspect]
     Active Substance: BLINATUMOMAB
     Dosage: 15 MCG/M2/D
     Route: 065
  2. BLINCYTO [Suspect]
     Active Substance: BLINATUMOMAB
     Dosage: 5 MUG/M2, EVERY 48 HOURS
     Route: 042
     Dates: start: 20160912, end: 20161011
  3. BLINCYTO [Suspect]
     Active Substance: BLINATUMOMAB
     Dosage: 10 MUG/M2, EVERY 48 HOURS
     Route: 042
     Dates: start: 20160923
  4. BLINCYTO [Suspect]
     Active Substance: BLINATUMOMAB
     Dosage: 15 MUG/M2, EVERY 24 HOURS
     Route: 042
     Dates: start: 20160912, end: 20161011
  5. BLINCYTO [Suspect]
     Active Substance: BLINATUMOMAB
     Dosage: 30 MUG/M2, EVERY 48 HOURS
     Route: 042
     Dates: start: 20160912, end: 20161011
  6. BLINCYTO [Suspect]
     Active Substance: BLINATUMOMAB
     Dosage: 20 MUG/M2, EVERY 48 HOURS
     Route: 042
     Dates: start: 20160923
  7. BLINCYTO [Suspect]
     Active Substance: BLINATUMOMAB
     Indication: B PRECURSOR TYPE ACUTE LEUKAEMIA
     Dosage: 4.4 MUG/24 HRS (5MCG/D/M2)
     Route: 065

REACTIONS (7)
  - Capillary leak syndrome [Recovered/Resolved]
  - Ileus [Recovered/Resolved]
  - Hyponatraemia [Recovered/Resolved]
  - Tachycardia [Unknown]
  - Pyrexia [Unknown]
  - Metabolic acidosis [Recovered/Resolved]
  - Hypovolaemic shock [Recovered/Resolved]

NARRATIVE: CASE EVENT DATE: 2016
